FAERS Safety Report 13581360 (Version 1)
Quarter: 2017Q2

REPORT INFORMATION
  Report Type: Spontaneous
  Country: US (occurrence: US)
  Receive Date: 20170525
  Receipt Date: 20170525
  Transmission Date: 20170830
  Serious: No
  Sender: FDA-Public Use
  Company Number: US-GLAXOSMITHKLINE-US2017GSK075026

PATIENT
  Sex: Female

DRUGS (1)
  1. NICODERM CQ [Suspect]
     Active Substance: NICOTINE
     Indication: SMOKING CESSATION THERAPY
     Dosage: UNK
     Dates: start: 201703, end: 20170330

REACTIONS (6)
  - Application site erythema [Unknown]
  - Application site irritation [Unknown]
  - Application site pain [Recovering/Resolving]
  - Application site reaction [Unknown]
  - Application site pruritus [Not Recovered/Not Resolved]
  - Application site burn [Unknown]

NARRATIVE: CASE EVENT DATE: 201703
